FAERS Safety Report 8695116 (Version 2)
Quarter: 2012Q4

REPORT INFORMATION
  Report Type: Spontaneous
  Country: JP (occurrence: None)
  Receive Date: 20120713
  Receipt Date: 20120917
  Transmission Date: 20130627
  Serious: Yes (Hospitalization)
  Sender: FDA-Public Use
  Company Number: VAL_00788_2012

PATIENT
  Age: 77 Year
  Sex: Male

DRUGS (3)
  1. ROCALTROL [Suspect]
     Indication: PRODUCT USED FOR UNKNOWN INDICATION
     Dosage: (df)
     Route: 048
     Dates: end: 201106
  2. CALCIUM CARBONATE [Suspect]
     Indication: PRODUCT USED FOR UNKNOWN INDICATION
     Dosage: (DF)
     Route: 048
     Dates: end: 201106
  3. ALFAROL [Suspect]
     Indication: PRODUCT USED FOR UNKNOWN INDICATION
     Dosage: (DF)

REACTIONS (7)
  - Decreased appetite [None]
  - Nausea [None]
  - Eosinophil count increased [None]
  - Hypercalcaemia [None]
  - Cardiac failure acute [None]
  - Eosinophilic myocarditis [None]
  - Pleural effusion [None]
